FAERS Safety Report 5974968-6 (Version None)
Quarter: 2008Q4

REPORT INFORMATION
  Report Type: 
  Country: None (occurrence: None)
  Receive Date: 20081128
  Receipt Date: 20081120
  Transmission Date: 20090506
  Serious: Yes (Death)
  Sender: FDA-Public Use
  Company Number: 08H-163-0315220-00

PATIENT
  Age: 77 Year
  Sex: Female

DRUGS (11)
  1. HEPARIN SODIUM INJECTION [Suspect]
     Indication: ANTICOAGULANT THERAPY
     Dosage: 5000 UNIT, INTRAVENOUS
     Route: 042
  2. 2% LIDOCAINE WITH EPINEPHRINE (XYLOCAINE-EPINEPHRINE) [Concomitant]
  3. PROPOFOL [Concomitant]
  4. FENTANYL-100 [Concomitant]
  5. CISATRACURIUM (CISATRACURIUM) [Concomitant]
  6. 50% NITROUS OXIDE (NITROUS OXIDE) [Concomitant]
  7. 50% OXYGEN (OXYGEN) [Concomitant]
  8. ISOFLURANE [Concomitant]
  9. CRYSTALLOIDS (I.V. SOLUTIONS) [Concomitant]
  10. RED BLOOD CELLS [Concomitant]
  11. SALVAGED BLOOD (BLOOD AND RELATED PRODUCTS) [Concomitant]

REACTIONS (13)
  - ACIDOSIS [None]
  - ADHESION [None]
  - ALANINE AMINOTRANSFERASE INCREASED [None]
  - AORTIC ANEURYSM [None]
  - ASPARTATE AMINOTRANSFERASE INCREASED [None]
  - DEEP VEIN THROMBOSIS [None]
  - FALL [None]
  - GENERAL PHYSICAL HEALTH DETERIORATION [None]
  - HAEMORRHAGE [None]
  - HEPARIN-INDUCED THROMBOCYTOPENIA [None]
  - PLATELET COUNT INCREASED [None]
  - POST PROCEDURAL COMPLICATION [None]
  - THROMBOSIS [None]
